FAERS Safety Report 22773405 (Version 5)
Quarter: 2024Q2

REPORT INFORMATION
  Report Type: Spontaneous
  Country: US (occurrence: US)
  Receive Date: 20230801
  Receipt Date: 20240520
  Transmission Date: 20240715
  Serious: No
  Sender: FDA-Public Use
  Company Number: US-PFIZER INC-PV202300131664

PATIENT
  Age: 74 Year
  Sex: Female

DRUGS (1)
  1. IBRANCE [Suspect]
     Active Substance: PALBOCICLIB
     Indication: Neoplasm malignant
     Dosage: TAKEN DAILY WITH OR WITHOUT FOOD ON DAYS 1-21 EVERY 28 DAYS
     Route: 048

REACTIONS (1)
  - Oropharyngeal discomfort [Unknown]
